FAERS Safety Report 12270617 (Version 1)
Quarter: 2016Q2

REPORT INFORMATION
  Report Type: Spontaneous
  Country: US (occurrence: US)
  Receive Date: 20160415
  Receipt Date: 20160415
  Transmission Date: 20160815
  Serious: No
  Sender: FDA-Public Use
  Company Number: US-PFIZER INC-2016193794

PATIENT
  Age: 72 Year
  Sex: Female

DRUGS (5)
  1. ADVIL [Suspect]
     Active Substance: IBUPROFEN
     Indication: ARTHRALGIA
     Dosage: 200 MG, SINGLE
     Dates: start: 201511
  2. ALEVE [Interacting]
     Active Substance: NAPROXEN SODIUM
     Indication: ARTHRALGIA
     Dosage: 1 DF, SINGLE
     Route: 048
     Dates: start: 201601, end: 201601
  3. JANUVIA [Interacting]
     Active Substance: SITAGLIPTIN PHOSPHATE
     Indication: TYPE 2 DIABETES MELLITUS
     Dosage: 100 MG, 1X/DAY
     Route: 048
     Dates: start: 201508
  4. ADVIL [Interacting]
     Active Substance: IBUPROFEN
     Dosage: 200 MG, SINGLE
     Dates: end: 201511
  5. BAYER ASPIRIN [Interacting]
     Active Substance: ASPIRIN
     Indication: ARTHRALGIA
     Dosage: 325 MG, SINGLE
     Route: 048
     Dates: start: 201602, end: 201602

REACTIONS (2)
  - Drug interaction [Recovered/Resolved]
  - Lip swelling [Recovered/Resolved]

NARRATIVE: CASE EVENT DATE: 201511
